FAERS Safety Report 7888363-6 (Version None)
Quarter: 2011Q4

REPORT INFORMATION
  Report Type: 
  Country: None (occurrence: None)
  Receive Date: 20111103
  Receipt Date: 20111027
  Transmission Date: 20120403
  Serious: Yes (Other)
  Sender: FDA-Public Use
  Company Number: PHEH2011US08144

PATIENT
  Age: 4 Year
  Sex: Male

DRUGS (2)
  1. TOBI [Suspect]
     Indication: CYSTIC FIBROSIS
     Dosage: 300 MG, EVERY 12 HRS FOR 28 DAYS OFF THEN REPEAT
     Dates: start: 20081110
  2. PULMOZYME [Concomitant]

REACTIONS (1)
  - PSEUDOMONAS INFECTION [None]
